FAERS Safety Report 17926747 (Version 1)
Quarter: 2020Q2

REPORT INFORMATION
  Report Type: Spontaneous
  Country: US (occurrence: US)
  Receive Date: 20200623
  Receipt Date: 20200623
  Transmission Date: 20200714
  Serious: No
  Sender: FDA-Public Use
  Company Number: US-ITALFARMACO SPA-2086531

PATIENT
  Age: 71 Year
  Sex: Male

DRUGS (4)
  1. RADICAVA [Concomitant]
     Active Substance: EDARAVONE
  2. ASPIRIN. [Concomitant]
     Active Substance: ASPIRIN
  3. TIGLUTIK [Suspect]
     Active Substance: RILUZOLE
     Indication: AMYOTROPHIC LATERAL SCLEROSIS
     Route: 048
     Dates: start: 20200127, end: 20200319
  4. LOSARTAN. [Concomitant]
     Active Substance: LOSARTAN

REACTIONS (2)
  - Diarrhoea [None]
  - Abdominal discomfort [None]
